FAERS Safety Report 6648011-X (Version None)
Quarter: 2010Q1

REPORT INFORMATION
  Report Type: 
  Country: None (occurrence: None)
  Receive Date: 20100324
  Receipt Date: 20100318
  Transmission Date: 20100710
  Serious: Yes (Other)
  Sender: FDA-Public Use
  Company Number: US-ELI_LILLY_AND_COMPANY-US201003005073

PATIENT
  Sex: Female

DRUGS (6)
  1. HUMALOG [Suspect]
     Dosage: UNK, AS NEEDED
     Dates: start: 19900101
  2. HUMALOG [Suspect]
     Dosage: UNK, AS NEEDED
     Dates: start: 20090901
  3. HUMULIN U [Suspect]
     Dates: end: 19900101
  4. HUMULIN R [Suspect]
     Dates: start: 20070101, end: 20090901
  5. HUMULIN N [Suspect]
     Dates: start: 20070101, end: 20090901
  6. LANTUS [Concomitant]

REACTIONS (9)
  - BLOOD GLUCOSE DECREASED [None]
  - CHRONIC FATIGUE SYNDROME [None]
  - COGNITIVE DISORDER [None]
  - CONFUSIONAL STATE [None]
  - FIBROMYALGIA [None]
  - GENERAL PHYSICAL HEALTH DETERIORATION [None]
  - HYPOGLYCAEMIC SEIZURE [None]
  - HYPOGLYCAEMIC UNCONSCIOUSNESS [None]
  - MEMORY IMPAIRMENT [None]
